FAERS Safety Report 19447920 (Version 1)
Quarter: 2021Q2

REPORT INFORMATION
  Report Type: Spontaneous
  Country: US (occurrence: US)
  Receive Date: 20210622
  Receipt Date: 20210622
  Transmission Date: 20210717
  Serious: No
  Sender: FDA-Public Use
  Company Number: None

PATIENT
  Age: 28 Year
  Sex: Female
  Weight: 56.25 kg

DRUGS (2)
  1. METHYLPHENIDATE HCL ER 54 MG TAB TRIG [Suspect]
     Active Substance: METHYLPHENIDATE HYDROCHLORIDE
     Indication: ATTENTION DEFICIT HYPERACTIVITY DISORDER
     Dosage: ?          QUANTITY:30 TABLET(S);?
     Route: 048
  2. PARAGARD T 380A [Concomitant]
     Active Substance: COPPER

REACTIONS (4)
  - Anxiety [None]
  - Therapeutic product effect decreased [None]
  - Product substitution issue [None]
  - Heart rate increased [None]

NARRATIVE: CASE EVENT DATE: 20200817
